FAERS Safety Report 7197480-8 (Version None)
Quarter: 2010Q4

REPORT INFORMATION
  Report Type: 
  Country: None (occurrence: None)
  Receive Date: 20101213
  Receipt Date: 20101202
  Transmission Date: 20110411
  Serious: Yes (Life-Threatening, Hospitalization)
  Sender: FDA-Public Use
  Company Number: 2010CP000318

PATIENT
  Age: 24 Year
  Sex: Male

DRUGS (6)
  1. PERFALON (PARACETAMOL) [Suspect]
     Indication: PYREXIA
     Dosage: 3 GRAM;3/1 DAY;IV
     Route: 042
     Dates: start: 20080314, end: 20080319
  2. CEFTRIAXONE [Suspect]
     Indication: ENDOCARDITIS BACTERIAL
     Dosage: 2 GRAM;1 DAY;IV
     Route: 042
     Dates: start: 20080228, end: 20080319
  3. NOTOTIL (METAMIZOLE MAGNESIUM) (NO PREF. NAME) [Suspect]
     Indication: PAIN
     Dosage: 6 GRAM;3/1 DAY;IV
     Route: 042
     Dates: start: 20080318, end: 20080319
  4. PANTOPRAZOLE SODIUM [Suspect]
     Indication: PROPHYLAXIS
     Dosage: 40 MILLIGRAM;1/1DAY;IV
     Route: 042
     Dates: start: 20080301, end: 20080319
  5. LORAZEPAM [Concomitant]
  6. FUROSEMIDE [Concomitant]

REACTIONS (4)
  - AGRANULOCYTOSIS [None]
  - HAEMOGLOBIN DECREASED [None]
  - PLATELET COUNT DECREASED [None]
  - WHITE BLOOD CELL COUNT DECREASED [None]
